FAERS Safety Report 10023488 (Version 1)
Quarter: 2013Q4

REPORT INFORMATION
  Report Type: Spontaneous
  Country: JP (occurrence: None)
  Receive Date: 20131231
  Receipt Date: 20131231
  Transmission Date: 20140711
  Serious: Yes (Hospitalization)
  Sender: FDA-Public Use
  Company Number: 2013SA091144

PATIENT
  Age: 64 Year
  Sex: Female
  Weight: 69.5 kg

DRUGS (27)
  1. MYSLEE [Suspect]
     Indication: INSOMNIA
     Route: 048
     Dates: start: 20120416
  2. PROGRAF (TACROLIMUS) [Suspect]
     Indication: RHEUMATOID ARTHRITIS
     Route: 048
     Dates: start: 20130704, end: 20130828
  3. CERTOLIZUMAB PEGOL (CERTOLIZUMAB PEGOL) [Suspect]
     Indication: RHEUMATOID ARTHRITIS
     Route: 058
     Dates: start: 20121025
  4. RHEUMATREX [Suspect]
     Indication: RHEUMATOID ARTHRITIS
     Route: 048
     Dates: start: 20130315, end: 20130828
  5. PREDNISOLONE (PREDNISOLONE) [Suspect]
     Indication: RHEUMATOID ARTHRITIS
     Route: 048
     Dates: start: 20120621, end: 20130828
  6. PREDNISOLONE (PREDNISOLONE) [Suspect]
     Indication: RHEUMATOID ARTHRITIS
     Route: 048
     Dates: start: 20120621, end: 20130828
  7. CEFZON [Suspect]
     Indication: PRODUCT USED FOR UNKNOWN INDICATION
     Route: 048
     Dates: start: 20130907, end: 20130909
  8. EQUA [Suspect]
     Indication: DIABETES MELLITUS MANAGEMENT
     Route: 048
     Dates: start: 20130906, end: 20130909
  9. LOXONIN [Concomitant]
  10. FOLIAMIN [Concomitant]
  11. MUCOSTA [Concomitant]
  12. CALBLOCK [Concomitant]
  13. VALSARTAN [Concomitant]
  14. METHYYCOBAL [Concomitant]
  15. ALINAMIN F [Concomitant]
  16. CRESTOR [Concomitant]
  17. VOLTAREN [Concomitant]
  18. ROCEPHIN [Concomitant]
  19. ACETAMINOPHEN [Concomitant]
  20. ZITHROMAC [Concomitant]
  21. PRIMPERAN [Concomitant]
  22. MEROPENEM [Concomitant]
  23. CALONAL [Concomitant]
  24. NOVORAPID [Concomitant]
  25. BIOFERMIN R [Concomitant]
  26. PARIET [Concomitant]
  27. CEFTRIAXONE [Concomitant]

REACTIONS (3)
  - Intentional drug misuse [None]
  - Pyelonephritis acute [None]
  - Intentional drug misuse [None]
